FAERS Safety Report 5769941-7 (Version None)
Quarter: 2008Q2

REPORT INFORMATION
  Report Type: 
  Country: None (occurrence: None)
  Receive Date: 20080613
  Receipt Date: 20080414
  Transmission Date: 20081010
  Serious: No
  Sender: FDA-Public Use
  Company Number: US-ABBOTT-08P-163-0447337-00

PATIENT
  Sex: Female
  Weight: 45.4 kg

DRUGS (3)
  1. HUMIRA [Suspect]
     Indication: RHEUMATOID ARTHRITIS
     Dosage: 120MG, THREE INJECTIONS ONCE
     Route: 058
     Dates: start: 20080411
  2. HUMIRA [Suspect]
     Indication: PSORIASIS
     Route: 058
  3. HUMIRA [Suspect]

REACTIONS (1)
  - ACCIDENTAL EXPOSURE [None]
